FAERS Safety Report 24230246 (Version 1)
Quarter: 2024Q3

REPORT INFORMATION
  Report Type: Spontaneous
  Country: CH (occurrence: CH)
  Receive Date: 20240820
  Receipt Date: 20240820
  Transmission Date: 20241017
  Serious: Yes (Hospitalization, Other)
  Sender: JOHNSON AND JOHNSON
  Company Number: None

PATIENT
  Age: 81 Year
  Sex: Male
  Weight: 69.3 kg

DRUGS (12)
  1. CANAGLIFLOZIN [Suspect]
     Active Substance: CANAGLIFLOZIN
     Indication: Product used for unknown indication
     Route: 048
  2. NEXIUM [Suspect]
     Active Substance: ESOMEPRAZOLE MAGNESIUM
     Indication: Product used for unknown indication
     Route: 048
     Dates: end: 20240716
  3. NEXIUM [Suspect]
     Active Substance: ESOMEPRAZOLE MAGNESIUM
     Dosage: THERAPY START DATE : 18/JUL/2024
     Route: 048
     Dates: end: 20240718
  4. ALDACTONE [Suspect]
     Active Substance: SPIRONOLACTONE
     Indication: Product used for unknown indication
     Dosage: 25 MG SPIRONOLACTONE PER TABLET
     Route: 048
     Dates: end: 20240716
  5. ALDACTONE [Suspect]
     Active Substance: SPIRONOLACTONE
     Dosage: 25 MG SPIRONOLACTONE PER TABLET?THERAPY START DATE: 19/JUL/2024
     Route: 048
     Dates: end: 20240722
  6. TORSEMIDE [Suspect]
     Active Substance: TORSEMIDE
     Indication: Product used for unknown indication
     Dosage: 5 MG TORASEMIDE PER TABLET?THERAPY END DATE: 14/JUL/2024
     Route: 048
  7. TORSEMIDE [Suspect]
     Active Substance: TORSEMIDE
     Dosage: 5 MG TORASEMIDE PER TABLET?THERAPY START DATE : 18/JUL/2024
     Route: 048
  8. ENTRESTO [Suspect]
     Active Substance: SACUBITRIL\VALSARTAN
     Indication: Product used for unknown indication
     Dosage: 24.3 MG SACUBITRIL/ 25.7 MG VALSARTAN PER TABLET; 1-0-2-0 (3 {DF})
     Route: 048
  9. ATORVASTATIN [Concomitant]
     Active Substance: ATORVASTATIN
     Route: 048
  10. ALLOPURINOL [Concomitant]
     Active Substance: ALLOPURINOL
     Route: 048
  11. ELIQUIS [Concomitant]
     Active Substance: APIXABAN
     Route: 048
  12. METOPROLOL AXAPHARM [Concomitant]
     Dosage: 100 MG METOPROLOL PER TABLET; 1-0-0.5-0
     Route: 048

REACTIONS (2)
  - Hypomagnesaemia [Recovered/Resolved]
  - Hyperkalaemia [Recovering/Resolving]

NARRATIVE: CASE EVENT DATE: 20240714
